FAERS Safety Report 5257098-0 (Version None)
Quarter: 2007Q1

REPORT INFORMATION
  Report Type: 
  Country: None (occurrence: None)
  Receive Date: 20070307
  Receipt Date: 20070306
  Transmission Date: 20070707
  Serious: Yes (Hospitalization, Other)
  Sender: FDA-Public Use
  Company Number: US-BRISTOL-MYERS SQUIBB COMPANY-13470653

PATIENT
  Age: 46 Year
  Sex: Male

DRUGS (9)
  1. CISPLATIN [Suspect]
     Indication: GASTRIC CANCER
     Route: 041
     Dates: start: 20060706, end: 20060706
  2. FLUOROURACIL [Suspect]
     Indication: GASTRIC CANCER
     Route: 041
     Dates: start: 20060706, end: 20060711
  3. DIFLUCAN [Concomitant]
     Indication: ANTIFUNGAL PROPHYLAXIS
     Route: 048
  4. ROXANOL [Concomitant]
     Indication: PAIN
     Route: 048
  5. ALLOPURINOL [Concomitant]
     Indication: GOUT
     Route: 048
  6. ATIVAN [Concomitant]
     Indication: ANXIETY
     Route: 048
  7. MOUTHWASH [Concomitant]
     Indication: MUCOSAL INFLAMMATION
     Route: 048
  8. FENTANYL [Concomitant]
     Indication: PAIN
     Route: 048
  9. COMPAZINE [Concomitant]
     Indication: NAUSEA
     Route: 048

REACTIONS (1)
  - FEBRILE NEUTROPENIA [None]
